FAERS Safety Report 6415174-0 (Version None)
Quarter: 2009Q4

REPORT INFORMATION
  Report Type: 
  Country: None (occurrence: None)
  Receive Date: 20091027
  Receipt Date: 20091015
  Transmission Date: 20100525
  Serious: Yes (Other)
  Sender: FDA-Public Use
  Company Number: IE-WYE-G04636109

PATIENT
  Sex: Male

DRUGS (1)
  1. RELISTOR [Suspect]
     Dosage: UNKNOWN

REACTIONS (3)
  - ABDOMINAL PAIN [None]
  - BLOOD PRESSURE DECREASED [None]
  - SHOCK [None]
